FAERS Safety Report 7794174-2 (Version None)
Quarter: 2011Q4

REPORT INFORMATION
  Report Type: 
  Country: None (occurrence: None)
  Receive Date: 20111004
  Receipt Date: 20110921
  Transmission Date: 20120403
  Serious: Yes (Other)
  Sender: FDA-Public Use
  Company Number: US-JNJFOC-20110909841

PATIENT
  Sex: Female
  Weight: 45.36 kg

DRUGS (6)
  1. VITAMIN D [Concomitant]
     Indication: NUTRITIONAL SUPPORT
     Route: 048
  2. REMICADE [Suspect]
     Indication: COLITIS ULCERATIVE
     Route: 042
     Dates: start: 20110301
  3. FLAGYL [Concomitant]
     Indication: COLITIS ULCERATIVE
     Route: 048
     Dates: start: 20110301
  4. BECLOMETHASONE DIPROPIONATE [Concomitant]
     Indication: ASTHMA
     Route: 048
  5. SINGULAIR [Concomitant]
     Indication: ASTHMA
     Route: 048
  6. PROBIOTICS [Concomitant]
     Indication: NUTRITIONAL SUPPORT
     Route: 048

REACTIONS (5)
  - HEPATITIS B [None]
  - STOMATITIS [None]
  - ASTHENIA [None]
  - DIZZINESS [None]
  - HEADACHE [None]
